FAERS Safety Report 7071923-2 (Version None)
Quarter: 2011Q1

REPORT INFORMATION
  Report Type: 
  Country: None (occurrence: None)
  Receive Date: 20101029
  Receipt Date: 20091104
  Transmission Date: 20110831
  Serious: No
  Sender: FDA-Public Use
  Company Number: A0815068A

PATIENT
  Age: 16 Year
  Sex: Male

DRUGS (2)
  1. ALBUTEROL INHALER [Concomitant]
  2. ADVAIR DISKUS 100/50 [Suspect]
     Indication: ASTHMA
     Dosage: 1PUFF TWICE PER DAY
     Route: 055
     Dates: start: 20090101, end: 20090101

REACTIONS (2)
  - HEART RATE INCREASED [None]
  - OVERDOSE [None]
